FAERS Safety Report 10732981 (Version 7)
Quarter: 2015Q3

REPORT INFORMATION
  Report Type: Report from Study
  Country: BR (occurrence: BR)
  Receive Date: 20150123
  Receipt Date: 20150709
  Transmission Date: 20151125
  Serious: Yes (Hospitalization, Other)
  Sender: FDA-Public Use
  Company Number: PHHY2014BR165718

PATIENT
  Age: 73 Year
  Sex: Female
  Weight: 44 kg

DRUGS (18)
  1. AMIORON [Concomitant]
     Indication: ARRHYTHMIA
     Dosage: 0.5 DF, QD
     Route: 065
  2. MASFEROL [Concomitant]
     Indication: RENAL DISORDER
     Dosage: 2 DF, QD
     Route: 065
  3. COMPLEXO B [Concomitant]
     Indication: WEIGHT DECREASED
     Dosage: 1 DF, BID (1 AFTER LUNCH, 1 AFTER DINNER)
     Route: 065
  4. METFORMIN [Concomitant]
     Active Substance: METFORMIN HYDROCHLORIDE
     Indication: DIABETES MELLITUS
     Dosage: 100 MG, QD
     Route: 048
  5. LEVOTIROXINA SODICA [Concomitant]
     Indication: THYROID DISORDER
     Dosage: 2 DF, QD
     Route: 048
  6. HYDROCHLOROTHIAZIDE. [Concomitant]
     Active Substance: HYDROCHLOROTHIAZIDE
     Indication: HYPERTENSION
     Dosage: 1 DF, QD
     Route: 065
  7. SINVASTATINA [Concomitant]
     Active Substance: SIMVASTATIN
     Indication: BLOOD CHOLESTEROL ABNORMAL
     Dosage: 20 MG, QD
     Route: 048
  8. CENTRUM [Concomitant]
     Active Substance: VITAMINS
     Indication: PRODUCT USED FOR UNKNOWN INDICATION
     Dosage: 1 DF, UNK
     Route: 065
  9. PLASIL [Concomitant]
     Active Substance: METOCLOPRAMIDE HYDROCHLORIDE
     Indication: NAUSEA
     Dosage: 1 OR 2 DF, QD
     Route: 065
     Dates: start: 2014
  10. PLASIL [Concomitant]
     Active Substance: METOCLOPRAMIDE HYDROCHLORIDE
     Dosage: 3 DF, QD
     Route: 065
  11. AFINITOR [Suspect]
     Active Substance: EVEROLIMUS
     Indication: RENAL CANCER METASTATIC
     Dosage: 5 MG, UNK
     Route: 048
  12. ENALAMED [Concomitant]
     Indication: HYPERTENSION
     Dosage: 10 MG, QD
     Route: 065
  13. OMEPRAZOLE. [Concomitant]
     Active Substance: OMEPRAZOLE
     Indication: NAUSEA
     Dosage: 2 DF, QD
     Route: 065
  14. SUTENT [Concomitant]
     Active Substance: SUNITINIB MALATE
     Indication: CHEST WALL TUMOUR
     Dosage: 1 DF, QD (AT NIGHT)
     Route: 065
     Dates: start: 201404
  15. MORFINA ATR MOLTEN [Concomitant]
     Indication: PAIN
     Dosage: 10 MG, UNK
     Route: 048
  16. AFINITOR [Suspect]
     Active Substance: EVEROLIMUS
     Dosage: 10 MG (1 DF) AT NIGHT/EVENING
     Route: 048
     Dates: start: 201312
  17. CIPROFIBRATO [Concomitant]
     Active Substance: CIPROFIBRATE
     Indication: BLOOD TRIGLYCERIDES ABNORMAL
     Dosage: 100 MG, QD
     Route: 048
  18. TETROID [Concomitant]
     Indication: THYROID DISORDER
     Dosage: 1 DF, UNK
     Route: 065

REACTIONS (20)
  - Oral candidiasis [Recovered/Resolved]
  - Oral pain [Unknown]
  - Anaemia [Recovering/Resolving]
  - Decreased appetite [Not Recovered/Not Resolved]
  - Nasopharyngitis [Unknown]
  - Nervousness [Unknown]
  - Nail discolouration [Not Recovered/Not Resolved]
  - Tumour pain [Recovering/Resolving]
  - Back pain [Recovered/Resolved]
  - Depressed mood [Unknown]
  - Hypophagia [Unknown]
  - Fatigue [Recovering/Resolving]
  - Loose tooth [Recovered/Resolved]
  - Pulpitis dental [Recovered/Resolved]
  - Onychalgia [Not Recovered/Not Resolved]
  - Onychomadesis [Not Recovered/Not Resolved]
  - Neoplasm [Recovering/Resolving]
  - Blood urine present [Not Recovered/Not Resolved]
  - Onychomycosis [Not Recovered/Not Resolved]
  - Aphthous ulcer [Recovering/Resolving]

NARRATIVE: CASE EVENT DATE: 201409
